FAERS Safety Report 21468584 (Version 1)
Quarter: 2022Q4

REPORT INFORMATION
  Report Type: Spontaneous
  Country: IN (occurrence: IN)
  Receive Date: 20221017
  Receipt Date: 20221017
  Transmission Date: 20230113
  Serious: Yes (Death, Other)
  Sender: FDA-Public Use
  Company Number: IN-GLENMARK PHARMACEUTICALS-2022GMK075774

PATIENT

DRUGS (1)
  1. ABIRATERONE ACETATE [Suspect]
     Active Substance: ABIRATERONE ACETATE
     Indication: Prostate cancer
     Dosage: 4 DOSAGE FORM, QD
     Route: 048
     Dates: start: 2020, end: 20220818

REACTIONS (1)
  - Cardiac failure [Fatal]

NARRATIVE: CASE EVENT DATE: 20220819
